FAERS Safety Report 9798792 (Version 2)
Quarter: 2014Q1

REPORT INFORMATION
  Report Type: Spontaneous
  Country: US (occurrence: US)
  Receive Date: 20140106
  Receipt Date: 20140106
  Transmission Date: 20141002
  Serious: No
  Sender: FDA-Public Use
  Company Number: US-GILEAD-2010-0029818

PATIENT
  Age: 62 Year
  Sex: Female
  Weight: 101.15 kg

DRUGS (6)
  1. LETAIRIS [Suspect]
     Indication: PULMONARY ARTERIAL HYPERTENSION
     Route: 048
     Dates: start: 20100111, end: 20100620
  2. ASPIRIN [Concomitant]
     Indication: PULMONARY HYPERTENSION
     Dates: start: 2007
  3. PROCARDIA XL [Concomitant]
     Indication: PULMONARY HYPERTENSION
     Dates: start: 2008
  4. COUMADIN [Concomitant]
     Indication: PULMONARY HYPERTENSION
     Dates: start: 20091103
  5. RAMIPRIL [Concomitant]
     Indication: HYPERTENSION
     Dates: start: 2009
  6. CALCITRIOL [Concomitant]
     Indication: VITAMIN D DEFICIENCY
     Dates: start: 20100518

REACTIONS (12)
  - Muscle spasms [Recovered/Resolved with Sequelae]
  - Fatigue [Recovering/Resolving]
  - Chest pain [Recovered/Resolved]
  - Vision blurred [Recovered/Resolved]
  - Depression [Recovered/Resolved]
  - Abdominal pain [Recovering/Resolving]
  - Rhinorrhoea [Recovered/Resolved]
  - Nasal congestion [Recovered/Resolved]
  - Headache [Recovered/Resolved]
  - Local swelling [Recovered/Resolved]
  - Dyspnoea [Recovered/Resolved]
  - Palpitations [Recovered/Resolved]
